FAERS Safety Report 6668523-2 (Version None)
Quarter: 2010Q2

REPORT INFORMATION
  Report Type: 
  Country: None (occurrence: None)
  Receive Date: 20100406
  Receipt Date: 20100326
  Transmission Date: 20101027
  Serious: Yes (Other)
  Sender: FDA-Public Use
  Company Number: TR-JNJFOC-20100308288

PATIENT
  Age: 45 Year
  Sex: Female

DRUGS (1)
  1. DURAGESIC-100 [Suspect]
     Indication: PROCEDURAL PAIN
     Route: 062

REACTIONS (5)
  - BRADYCARDIA [None]
  - CYANOSIS [None]
  - POSTOPERATIVE ANALGESIA [None]
  - RESPIRATORY DEPRESSION [None]
  - SOMNOLENCE [None]
